FAERS Safety Report 7878245-8 (Version None)
Quarter: 2011Q4

REPORT INFORMATION
  Report Type: 
  Country: None (occurrence: None)
  Receive Date: 20111027
  Receipt Date: 20111017
  Transmission Date: 20120403
  Serious: Yes (Hospitalization)
  Sender: FDA-Public Use
  Company Number: B0757896A

PATIENT
  Age: 31 Year
  Sex: Female

DRUGS (2)
  1. PROPRANOLOL HYDROCHLORIDE [Suspect]
     Indication: PRODUCT USED FOR UNKNOWN INDICATION
     Dosage: 3.6 GRAM(S) / SINGLE DOSE /
  2. ETHANOL (FORMULATION UNKNOWN) (ALCOHOL) [Suspect]
     Indication: PRODUCT USED FOR UNKNOWN INDICATION

REACTIONS (11)
  - OVERDOSE [None]
  - RESPIRATORY RATE DECREASED [None]
  - HYPOGLYCAEMIA [None]
  - GRAND MAL CONVULSION [None]
  - BLOOD PRESSURE DECREASED [None]
  - ELECTROCARDIOGRAM P WAVE ABNORMAL [None]
  - TACHYCARDIA [None]
  - COMA [None]
  - HEART RATE DECREASED [None]
  - SUPRAVENTRICULAR TACHYCARDIA [None]
  - OXYGEN SATURATION DECREASED [None]
